FAERS Safety Report 4347840-5 (Version None)
Quarter: 2004Q2

REPORT INFORMATION
  Report Type: 
  Country: None (occurrence: None)
  Receive Date: 20040422
  Receipt Date: 20040401
  Transmission Date: 20050107
  Serious: Yes (Other)
  Sender: FDA-Public Use
  Company Number: USA040361319

PATIENT
  Age: 96 Year
  Sex: Female
  Weight: 62 kg

DRUGS (7)
  1. EVISTA [Suspect]
     Indication: OSTEOPOROSIS
  2. FOSAMAX [Concomitant]
  3. NORVASC [Concomitant]
  4. LASIX [Concomitant]
  5. CLONIDINE HCL [Concomitant]
  6. SYNTHROID [Concomitant]
  7. AXID [Concomitant]

REACTIONS (4)
  - BACK PAIN [None]
  - HYPERTENSION [None]
  - MULTIPLE FRACTURES [None]
  - PELVIC FRACTURE [None]
